FAERS Safety Report 6528524-1 (Version None)
Quarter: 2009Q4

REPORT INFORMATION
  Report Type: 
  Country: None (occurrence: None)
  Receive Date: 20091222
  Receipt Date: 20090906
  Transmission Date: 20100525
  Serious: No
  Sender: FDA-Public Use
  Company Number: ALL1-2009-02589

PATIENT
  Age: 22 Year
  Sex: Male
  Weight: 56.7 kg

DRUGS (3)
  1. VYVANSE [Suspect]
     Indication: ATTENTION DEFICIT/HYPERACTIVITY DISORDER
     Dosage: 50 MG, 1X/DAY:QD, ORAL
     Route: 048
     Dates: start: 20090201
  2. SINGULAR /01362601/ (MONTELUKAST) [Concomitant]
  3. ALLEGRA /01314201/ (FEXOFENADINE) [Concomitant]

REACTIONS (4)
  - COUGH [None]
  - DIZZINESS [None]
  - HEADACHE [None]
  - SINUSITIS [None]
